FAERS Safety Report 20046320 (Version 1)
Quarter: 2021Q4

REPORT INFORMATION
  Report Type: Spontaneous
  Country: US (occurrence: US)
  Receive Date: 20211109
  Receipt Date: 20211109
  Transmission Date: 20220303
  Serious: No
  Sender: FDA-Public Use
  Company Number: US-CIPLA LTD.-2021US05466

PATIENT

DRUGS (3)
  1. GABAPENTIN [Suspect]
     Active Substance: GABAPENTIN
     Indication: Neuropathy peripheral
     Dosage: 400 MILLIGRAM
     Route: 065
     Dates: end: 20210802
  2. GABAPENTIN [Suspect]
     Active Substance: GABAPENTIN
     Dosage: TWO 300 MG CAPSULES PER DAY
     Route: 065
     Dates: start: 20210803
  3. OXYBUTYNIN [Concomitant]
     Active Substance: OXYBUTYNIN
     Indication: Product used for unknown indication
     Dosage: UNK
     Route: 065

REACTIONS (10)
  - Migraine [Unknown]
  - Feeling abnormal [Unknown]
  - Bradykinesia [Unknown]
  - Off label use [Unknown]
  - Product use in unapproved indication [Unknown]
  - Headache [Unknown]
  - Nausea [Unknown]
  - Asthenia [Unknown]
  - Somnolence [Unknown]
  - Fatigue [Unknown]

NARRATIVE: CASE EVENT DATE: 20210730
